FAERS Safety Report 9135133 (Version 1)
Quarter: 2013Q1

REPORT INFORMATION
  Report Type: Report from Study
  Country: US (occurrence: US)
  Receive Date: 20130304
  Receipt Date: 20130304
  Transmission Date: 20140127
  Serious: Yes (Hospitalization, Other)
  Sender: FDA-Public Use
  Company Number: US-PURDUE-USA-2010-0050726

PATIENT
  Sex: Male

DRUGS (1)
  1. OXYCONTIN (NDA 22-272) [Suspect]
     Indication: PAIN
     Dosage: 320 MG, Q12H
     Route: 048
     Dates: start: 201008

REACTIONS (5)
  - Concussion [Unknown]
  - Lyme disease [Unknown]
  - Fall [Unknown]
  - Convulsion [Unknown]
  - Diarrhoea [Unknown]
